FAERS Safety Report 11552356 (Version 1)
Quarter: 2015Q3

REPORT INFORMATION
  Report Type: Spontaneous
  Country: US (occurrence: US)
  Receive Date: 20150925
  Receipt Date: 20150925
  Transmission Date: 20151125
  Serious: No
  Sender: FDA-Public Use
  Company Number: US-PFIZER INC-2015310713

PATIENT
  Sex: Female

DRUGS (2)
  1. GLUCOTROL [Suspect]
     Active Substance: GLIPIZIDE
     Dosage: 5 MG, UNK
  2. GLUCOTROL XL [Suspect]
     Active Substance: GLIPIZIDE
     Dosage: 2.5 MG, UNK

REACTIONS (2)
  - Dyskinesia [Unknown]
  - Blood glucose decreased [Unknown]
